FAERS Safety Report 24618541 (Version 6)
Quarter: 2025Q4

REPORT INFORMATION
  Report Type: Report from Study
  Country: JP (occurrence: JP)
  Receive Date: 20241114
  Receipt Date: 20251113
  Transmission Date: 20260118
  Serious: Yes (Other)
  Sender: GENMAB
  Company Number: JP-GENMAB-2024-00313AA

PATIENT
  Age: 58 Year
  Sex: Female
  Weight: 56.4 kg

DRUGS (4)
  1. EPKINLY [Suspect]
     Active Substance: EPCORITAMAB-BYSP
     Indication: Diffuse large B-cell lymphoma refractory
     Dosage: 0.16 MILLIGRAM, SINGLE
     Route: 065
     Dates: start: 20240110, end: 20240110
  2. EPKINLY [Suspect]
     Active Substance: EPCORITAMAB-BYSP
     Dosage: 0.8 MILLIGRAM, SINGLE
     Route: 065
     Dates: start: 20240117, end: 20240117
  3. EPKINLY [Suspect]
     Active Substance: EPCORITAMAB-BYSP
     Dosage: 48 MILLIGRAM
     Route: 065
     Dates: start: 20240124, end: 20240528
  4. PREDNISOLONE [Concomitant]
     Active Substance: PREDNISOLONE
     Indication: Prophylaxis
     Dosage: UNK, AT ADMINISTRATION OF EPKINLY, FROM THE FIRST TO FORTH ADMINISTRATION IN CYCLE 1 OF EPKINLY
     Dates: start: 20240110, end: 202402

REACTIONS (4)
  - Neutrophil count decreased [Recovered/Resolved]
  - Cytokine release syndrome [Recovered/Resolved]
  - Abdominal pain [Recovering/Resolving]
  - Drug ineffective [Unknown]

NARRATIVE: CASE EVENT DATE: 20240101
